FAERS Safety Report 14697659 (Version 1)
Quarter: 2018Q1

REPORT INFORMATION
  Report Type: Spontaneous
  Country: US (occurrence: US)
  Receive Date: 20180330
  Receipt Date: 20180330
  Transmission Date: 20180509
  Serious: No
  Sender: FDA-Public Use
  Company Number: US-SA-2017SA233648

PATIENT
  Age: 61 Year
  Sex: Female

DRUGS (1)
  1. ALLEGRA [Suspect]
     Active Substance: FEXOFENADINE HYDROCHLORIDE
     Indication: HYPERSENSITIVITY
     Dosage: HASN^T TAKEN IN 3 DA?FORM GEL CAP
     Route: 048

REACTIONS (4)
  - Eye discharge [Unknown]
  - Product shape issue [Unknown]
  - Drug ineffective [Unknown]
  - Conjunctivitis [Unknown]
